FAERS Safety Report 21787896 (Version 1)
Quarter: 2022Q4

REPORT INFORMATION
  Report Type: Spontaneous
  Country: US (occurrence: US)
  Receive Date: 20221228
  Receipt Date: 20221228
  Transmission Date: 20230113
  Serious: No
  Sender: FDA-Public Use
  Company Number: US-SA-SAC20221226001266

PATIENT
  Age: 57 Year
  Sex: Male

DRUGS (15)
  1. DUPIXENT [Suspect]
     Active Substance: DUPILUMAB
     Indication: Dermatitis atopic
     Dosage: 300 MG, QOW
     Route: 058
     Dates: start: 20220802
  2. ALBUTEROL SULFATE [Concomitant]
     Active Substance: ALBUTEROL SULFATE
  3. ATORVASTATIN [Concomitant]
     Active Substance: ATORVASTATIN
  4. AZITHROMYCIN [Concomitant]
     Active Substance: AZITHROMYCIN
  5. CETIRIZINE [Concomitant]
     Active Substance: CETIRIZINE HYDROCHLORIDE
  6. CLOBETASOL [Concomitant]
     Active Substance: CLOBETASOL
  7. LATANOPROST [Concomitant]
     Active Substance: LATANOPROST
  8. METHYLPREDNISOLONE [Concomitant]
     Active Substance: METHYLPREDNISOLONE
  9. MONTELUKAST [Concomitant]
     Active Substance: MONTELUKAST SODIUM
  10. MURO 128 [Concomitant]
     Active Substance: SODIUM CHLORIDE
     Dosage: MURO 128 SOL 2% OP
  11. PIMECROLIMUS [Concomitant]
     Active Substance: PIMECROLIMUS
  12. TIMOLOL [Concomitant]
     Active Substance: TIMOLOL
     Dosage: TIMOLOL MAL SOL 0.5% OP
  13. VALSARTAN [Concomitant]
     Active Substance: VALSARTAN
  14. TRIAMCINOLONE [Concomitant]
     Active Substance: TRIAMCINOLONE
  15. VALSARTAN [Concomitant]
     Active Substance: VALSARTAN

REACTIONS (2)
  - Hepatic cyst [Not Recovered/Not Resolved]
  - Peripheral swelling [Not Recovered/Not Resolved]
